FAERS Safety Report 15743981 (Version 1)
Quarter: 2018Q4

REPORT INFORMATION
  Report Type: Spontaneous
  Country: DE (occurrence: DE)
  Receive Date: 20181220
  Receipt Date: 20181220
  Transmission Date: 20190205
  Serious: Yes (Other)
  Sender: FDA-Public Use
  Company Number: DE-ACCORD-096603

PATIENT
  Age: 76 Year
  Sex: Female

DRUGS (2)
  1. LETROZOLE. [Suspect]
     Active Substance: LETROZOLE
     Indication: PRODUCT USED FOR UNKNOWN INDICATION
     Route: 065
  2. PALBOCICLIB [Suspect]
     Active Substance: PALBOCICLIB
     Indication: BREAST CANCER METASTATIC
     Dosage: 125 MG, UNK
     Route: 065

REACTIONS (6)
  - Aspartate aminotransferase increased [Unknown]
  - Neutropenia [Unknown]
  - Haemoglobin decreased [Unknown]
  - Alanine aminotransferase increased [Unknown]
  - Neoplasm progression [Unknown]
  - Leukopenia [Unknown]

NARRATIVE: CASE EVENT DATE: 201601
